FAERS Safety Report 9007141 (Version 1)
Quarter: 2013Q1

REPORT INFORMATION
  Report Type: Spontaneous
  Country: US (occurrence: US)
  Receive Date: 20130110
  Receipt Date: 20130110
  Transmission Date: 20140127
  Serious: Yes (Death)
  Sender: FDA-Public Use
  Company Number: US-ASTRAZENECA-2013SE01577

PATIENT
  Age: 54 Year
  Sex: Male

DRUGS (5)
  1. QUETIAPINE [Suspect]
     Route: 048
  2. HEROIN [Suspect]
  3. ETHANOL [Suspect]
  4. LAXATIVE [Suspect]
  5. SERTRALINE [Suspect]

REACTIONS (4)
  - Toxicity to various agents [Fatal]
  - Cardio-respiratory arrest [Fatal]
  - Cardiac arrest [None]
  - Respiratory arrest [None]
